APPROVED DRUG PRODUCT: TEGOPEN
Active Ingredient: CLOXACILLIN SODIUM
Strength: EQ 125MG BASE/5ML
Dosage Form/Route: FOR SOLUTION;ORAL
Application: N050192 | Product #001
Applicant: APOTHECON INC DIV BRISTOL MYERS SQUIBB
Approved: Approved Prior to Jan 1, 1982 | RLD: No | RS: No | Type: DISCN